FAERS Safety Report 4450536-2 (Version None)
Quarter: 2004Q3

REPORT INFORMATION
  Report Type: 
  Country: None (occurrence: None)
  Receive Date: 20040914
  Receipt Date: 20040901
  Transmission Date: 20050211
  Serious: No
  Sender: FDA-Public Use
  Company Number: 2004UW18628

PATIENT
  Age: 70 Year
  Sex: Male
  Weight: 80.7403 kg

DRUGS (3)
  1. NEXIUM [Suspect]
     Indication: GASTROOESOPHAGEAL REFLUX DISEASE
     Dosage: 40 MG BIWK PO
     Route: 048
  2. LUPRON [Concomitant]
  3. MEGESTROL [Concomitant]

REACTIONS (1)
  - PROSTATE CANCER [None]
